FAERS Safety Report 8355162-0 (Version None)
Quarter: 2012Q2

REPORT INFORMATION
  Report Type: 
  Country: None (occurrence: None)
  Receive Date: 20120511
  Receipt Date: 20120510
  Transmission Date: 20120825
  Serious: Yes (Other)
  Sender: FDA-Public Use
  Company Number: CHPA2012US010133

PATIENT
  Age: 59 Year
  Sex: Female

DRUGS (1)
  1. VOLTAREN [Suspect]
     Indication: LIMB INJURY
     Dosage: LESS THAN 2GRAMS, QID
     Route: 061
     Dates: start: 20110823

REACTIONS (4)
  - PARAESTHESIA [None]
  - HYPOAESTHESIA [None]
  - OFF LABEL USE [None]
  - VASCULAR OCCLUSION [None]
